FAERS Safety Report 19681780 (Version 1)
Quarter: 2021Q3

REPORT INFORMATION
  Report Type: Spontaneous
  Country: US (occurrence: US)
  Receive Date: 20210810
  Receipt Date: 20210810
  Transmission Date: 20211014
  Serious: No
  Sender: FDA-Public Use
  Company Number: US-UPSHER-SMITH LABORATORIES, LLC-2021USL00499

PATIENT
  Age: 47 Year
  Sex: Female

DRUGS (11)
  1. MYCOPHENOLATE [Concomitant]
     Active Substance: MYCOPHENOLIC ACID
  2. VITAMIN D [Concomitant]
     Active Substance: VITAMIN D NOS
  3. BENLYSTA [Concomitant]
     Active Substance: BELIMUMAB
  4. PANTOPRAZOLE [Concomitant]
     Active Substance: PANTOPRAZOLE
  5. LEXAPRO [Concomitant]
     Active Substance: ESCITALOPRAM OXALATE
  6. NABUMETONE. [Concomitant]
     Active Substance: NABUMETONE
  7. AIMOVIG [Concomitant]
     Active Substance: ERENUMAB-AOOE
  8. TOSYMRA [Suspect]
     Active Substance: SUMATRIPTAN
     Indication: MIGRAINE
     Dosage: 10 ?G, AS NEEDED AT ONSET OF MIGRAINE. MAY REPEAT IN 2 HOURS. MAX 2 SPRAYS IN 24 HOURS
     Route: 045
  9. METOPROLOL. [Concomitant]
     Active Substance: METOPROLOL
  10. SEROQUEL [Concomitant]
     Active Substance: QUETIAPINE FUMARATE
  11. GABAPENTIN. [Concomitant]
     Active Substance: GABAPENTIN

REACTIONS (3)
  - Burning sensation [Recovered/Resolved]
  - Epistaxis [Recovered/Resolved]
  - Limb discomfort [Recovered/Resolved]
